FAERS Safety Report 6078193-2 (Version None)
Quarter: 2009Q1

REPORT INFORMATION
  Report Type: 
  Country: None (occurrence: None)
  Receive Date: 20090213
  Receipt Date: 20090204
  Transmission Date: 20090719
  Serious: Yes (Hospitalization, Other)
  Sender: FDA-Public Use
  Company Number: PHHY2008JP25269

PATIENT
  Sex: Female
  Weight: 63 kg

DRUGS (10)
  1. ZOMETA [Suspect]
     Indication: METASTASES TO BONE
     Dosage: UNK
     Route: 042
     Dates: start: 20060807, end: 20071030
  2. ZOMETA [Suspect]
     Dosage: UNK
     Route: 042
     Dates: start: 20080508, end: 20080528
  3. HYSRON [Concomitant]
     Indication: BREAST CANCER
     Dosage: 600 MG, UNK
     Route: 048
     Dates: start: 20080502
  4. FARESTON [Concomitant]
     Indication: BREAST CANCER
     Dosage: 120 MG, UNK
     Route: 048
     Dates: start: 20080702
  5. LOXONIN [Concomitant]
     Indication: PAIN MANAGEMENT
     Dosage: 120 MG, UNK
     Route: 048
     Dates: start: 20070507
  6. FERROMIA [Concomitant]
     Indication: ANAEMIA PROPHYLAXIS
     Dosage: 100 MG, UNK
     Route: 048
     Dates: start: 20080108
  7. FAMOTIDINE [Concomitant]
     Indication: PROPHYLAXIS OF NAUSEA AND VOMITING
     Dosage: 40 MG, UNK
     Route: 048
     Dates: start: 20060329
  8. MORPHINE SULFATE [Concomitant]
     Indication: PAIN MANAGEMENT
     Dosage: 60 MG, UNK
     Route: 048
     Dates: start: 20071225
  9. DUROTEP [Concomitant]
     Indication: PAIN MANAGEMENT
     Dosage: UNK
     Route: 061
     Dates: start: 20070305
  10. TAXOTERE [Concomitant]
     Indication: BREAST CANCER
     Dosage: UNK
     Route: 042
     Dates: start: 20080508, end: 20080618

REACTIONS (5)
  - BONE MARROW FAILURE [None]
  - ENDODONTIC PROCEDURE [None]
  - OEDEMA PERIPHERAL [None]
  - OSTEONECROSIS [None]
  - TOOTH EXTRACTION [None]
